FAERS Safety Report 21527655 (Version 1)
Quarter: 2022Q4

REPORT INFORMATION
  Report Type: Report from Study
  Country: DE (occurrence: DE)
  Receive Date: 20221031
  Receipt Date: 20221031
  Transmission Date: 20230113
  Serious: Yes (Other)
  Sender: FDA-Public Use
  Company Number: DE-BAYER-2022A150567

PATIENT
  Sex: Female

DRUGS (1)
  1. NAPROXEN [Suspect]
     Active Substance: NAPROXEN
     Indication: Rheumatic disorder
     Dosage: 500 MG/D

REACTIONS (4)
  - Foetal death [None]
  - Gestational diabetes [None]
  - Placental insufficiency [None]
  - Maternal exposure during pregnancy [None]
